FAERS Safety Report 7103608-8 (Version None)
Quarter: 2010Q4

REPORT INFORMATION
  Report Type: 
  Country: None (occurrence: None)
  Receive Date: 20101115
  Receipt Date: 20091004
  Transmission Date: 20110411
  Serious: No
  Sender: FDA-Public Use
  Company Number: US-KINGPHARMUSA00001-K200901231

PATIENT
  Age: 79 Year
  Sex: Female
  Weight: 82.086 kg

DRUGS (10)
  1. LEVOXYL [Suspect]
     Indication: HYPOTHYROIDISM
     Dosage: 125 MCG, QD
     Route: 048
     Dates: start: 20090601, end: 20090914
  2. LEVOXYL [Suspect]
     Dosage: .15 MG, QD
     Route: 048
     Dates: start: 20030101, end: 20090601
  3. LEVOXYL [Suspect]
     Dosage: .15 MG, QD
     Route: 048
     Dates: start: 20090914
  4. LOVASTATIN [Concomitant]
     Indication: BLOOD CHOLESTEROL INCREASED
     Dosage: 40 MG, QD
     Route: 048
  5. OMEPRAZOLE [Concomitant]
     Indication: HERNIA
     Dosage: UNK
  6. ALENDRONATE SODIUM [Concomitant]
     Indication: OSTEOPOROSIS
     Dosage: 70 MG, QD
     Route: 048
  7. CLONIDINE [Concomitant]
     Indication: HYPERTENSION
     Dosage: 0.1 MG, QD
     Route: 048
  8. CAPTOPRIL [Concomitant]
     Indication: HYPERTENSION
     Dosage: 50 MG, TID
  9. TRIAMTERENE [Concomitant]
     Indication: HYPERTENSION
     Dosage: 75/50, QD
  10. DILTIAZEM HCL [Concomitant]
     Dosage: 180 MG, BID

REACTIONS (3)
  - OEDEMA PERIPHERAL [None]
  - PRURITUS [None]
  - WEIGHT INCREASED [None]
